FAERS Safety Report 8083228-1 (Version None)
Quarter: 2012Q1

REPORT INFORMATION
  Report Type: 
  Country: None (occurrence: None)
  Receive Date: 20120127
  Receipt Date: 20110303
  Transmission Date: 20120608
  Serious: No
  Sender: FDA-Public Use
  Company Number: US-ABBOTT-11P-163-0709051-00

PATIENT
  Sex: Female

DRUGS (3)
  1. HUMIRA [Suspect]
     Indication: RHEUMATOID ARTHRITIS
     Route: 058
     Dates: start: 20110224
  2. HYDROXYCHLOROQUINE SULFATE [Concomitant]
     Indication: CONVULSION
  3. UNKNOWN MEDICATION [Concomitant]
     Indication: CONVULSION

REACTIONS (2)
  - PAIN [None]
  - DERMAL CYST [None]
